FAERS Safety Report 7735257-2 (Version None)
Quarter: 2011Q3

REPORT INFORMATION
  Report Type: 
  Country: None (occurrence: None)
  Receive Date: 20110907
  Receipt Date: 20110902
  Transmission Date: 20111222
  Serious: Yes (Other)
  Sender: FDA-Public Use
  Company Number: US-VERTEX PHARMACEUTICALS INC.-AE-2011-001288

PATIENT
  Age: 60 Year
  Sex: Male

DRUGS (5)
  1. RIBAVIRIN [Concomitant]
     Indication: HEPATITIS C
  2. PEGASYS [Concomitant]
     Indication: HEPATITIS C
  3. BYETTA [Concomitant]
  4. INCIVEK [Suspect]
     Indication: HEPATITIS C
  5. LANTUS [Concomitant]

REACTIONS (2)
  - RENAL IMPAIRMENT [None]
  - ENCEPHALOPATHY [None]
